FAERS Safety Report 6064629-X (Version None)
Quarter: 2009Q1

REPORT INFORMATION
  Report Type: 
  Country: None (occurrence: None)
  Receive Date: 20090204
  Receipt Date: 20080114
  Transmission Date: 20090719
  Serious: No
  Sender: FDA-Public Use
  Company Number: A0703020A

PATIENT
  Age: 60 Year
  Sex: Female

DRUGS (4)
  1. ARIXTRA [Suspect]
     Dosage: 2.5MG PER DAY
     Route: 058
     Dates: start: 20080109
  2. TOPROL-XL [Concomitant]
  3. HYDROCHLOROTHIAZIDE [Concomitant]
  4. NEXIUM [Concomitant]

REACTIONS (1)
  - INJECTION SITE IRRITATION [None]
